FAERS Safety Report 19297550 (Version 3)
Quarter: 2021Q2

REPORT INFORMATION
  Report Type: Report from Study
  Country: None (occurrence: FR)
  Receive Date: 20210524
  Receipt Date: 20210604
  Transmission Date: 20210717
  Serious: Yes (Death, Life-Threatening, Hospitalization, Other)
  Sender: FDA-Public Use
  Company Number: FR-ABBVIE-21K-056-3919017-00

PATIENT
  Age: 77 Year
  Sex: Male

DRUGS (4)
  1. DUODOPA [Suspect]
     Active Substance: CARBIDOPA\LEVODOPA
  2. MORPHINE [Concomitant]
     Active Substance: MORPHINE
     Indication: TERMINAL STATE
  3. OXYGEN. [Concomitant]
     Active Substance: OXYGEN
     Indication: PRODUCT USED FOR UNKNOWN INDICATION
     Dosage: 15 L
  4. DUODOPA [Suspect]
     Active Substance: CARBIDOPA\LEVODOPA
     Indication: PARKINSON^S DISEASE
     Route: 050
     Dates: start: 201707

REACTIONS (10)
  - Dependence on oxygen therapy [Unknown]
  - Faecaloma [Unknown]
  - Pneumonia aspiration [Fatal]
  - Coma [Fatal]
  - Constipation [Unknown]
  - Condition aggravated [Fatal]
  - Syncope [Unknown]
  - Dizziness [Unknown]
  - Intestinal obstruction [Fatal]
  - Lung disorder [Unknown]

NARRATIVE: CASE EVENT DATE: 20210520
